FAERS Safety Report 7911210-0 (Version None)
Quarter: 2011Q4

REPORT INFORMATION
  Report Type: 
  Country: None (occurrence: None)
  Receive Date: 20111114
  Receipt Date: 20111104
  Transmission Date: 20120403
  Serious: Yes (Other)
  Sender: FDA-Public Use
  Company Number: CH-JNJFOC-20111102589

PATIENT
  Age: 44 Year
  Sex: Male

DRUGS (3)
  1. CYMBALTA [Suspect]
     Indication: HALLUCINATION, AUDITORY
     Route: 065
     Dates: start: 20110801
  2. CYMBALTA [Suspect]
     Route: 065
  3. INVEGA [Suspect]
     Indication: SCHIZOPHRENIA
     Route: 048
     Dates: start: 20090101

REACTIONS (3)
  - ENURESIS [None]
  - PRIAPISM [None]
  - NOCTURIA [None]
